FAERS Safety Report 19083040 (Version 3)
Quarter: 2021Q3

REPORT INFORMATION
  Report Type: Report from Study
  Country: CA (occurrence: CA)
  Receive Date: 20210401
  Receipt Date: 20210920
  Transmission Date: 20211014
  Serious: Yes (Hospitalization)
  Sender: FDA-Public Use
  Company Number: CA-JNJFOC-20210350489

PATIENT
  Age: 70 Year
  Sex: Female
  Weight: 99 kg

DRUGS (3)
  1. STELARA [Suspect]
     Active Substance: USTEKINUMAB
     Indication: PSORIASIS
     Dosage: THERAPY START DATE: 04?SEP?2019
     Route: 058
     Dates: start: 20190828
  2. STELARA [Suspect]
     Active Substance: USTEKINUMAB
     Indication: NECROBIOSIS LIPOIDICA DIABETICORUM
  3. STELARA [Suspect]
     Active Substance: USTEKINUMAB
     Indication: RHEUMATOID ARTHRITIS

REACTIONS (5)
  - Coma [Unknown]
  - Sepsis [Unknown]
  - Infarction [Unknown]
  - Lung disorder [Unknown]
  - Pyelonephritis acute [Unknown]

NARRATIVE: CASE EVENT DATE: 202103
